FAERS Safety Report 9538692 (Version 1)
Quarter: 2013Q3

REPORT INFORMATION
  Report Type: Spontaneous
  Country: US (occurrence: US)
  Receive Date: 20130920
  Receipt Date: 20130920
  Transmission Date: 20140515
  Serious: Yes (Other)
  Sender: FDA-Public Use
  Company Number: PHEH2013US019397

PATIENT
  Age: 62 Year
  Sex: Female

DRUGS (5)
  1. DIOVAN [Suspect]
  2. HYDROCHLOROTHIAZIDE [Suspect]
     Dosage: 25 MG, UNK
  3. LISINOPRIL+HCT [Suspect]
     Dosage: 1 DF (12.5MG HCT+/20MG LISIN) UNK
  4. LOSARTAN [Suspect]
     Dosage: 50 MG, PER DAY
     Dates: start: 201308
  5. CRESTOR [Suspect]
     Dosage: 10 MG, UNK

REACTIONS (3)
  - Cerebrovascular accident [Unknown]
  - Malaise [Unknown]
  - Cough [Unknown]
